FAERS Safety Report 18563883 (Version 1)
Quarter: 2020Q4

REPORT INFORMATION
  Report Type: Other
  Country: GB (occurrence: GB)
  Receive Date: 20201201
  Receipt Date: 20201201
  Transmission Date: 20210114
  Serious: Yes (Life-Threatening, Hospitalization, Other)
  Sender: FDA-Public Use
  Company Number: GB-STRIDES ARCOLAB LIMITED-2020SP014670

PATIENT
  Age: 46 Year
  Sex: Female

DRUGS (4)
  1. TRANEXAMIC ACID. [Suspect]
     Active Substance: TRANEXAMIC ACID
     Indication: HAEMORRHAGE
  2. TRANEXAMIC ACID. [Suspect]
     Active Substance: TRANEXAMIC ACID
     Indication: MENORRHAGIA
     Dosage: 3 GRAM PER DAY (1 G, 3X/DAY DURING MENSTRUAL PERIOD)
     Route: 065
  3. MEFENAMIC ACID. [Suspect]
     Active Substance: MEFENAMIC ACID
     Indication: PAIN
  4. MEFENAMIC ACID. [Suspect]
     Active Substance: MEFENAMIC ACID
     Indication: MENORRHAGIA
     Dosage: 1500 MILLIGRAM PER DAY (500 MG, 3X/DAY DURING MENSTRUAL PERIOD)
     Route: 065

REACTIONS (6)
  - Anxiety [Unknown]
  - Pulmonary embolism [Recovered/Resolved]
  - Sinus tachycardia [Unknown]
  - Chest pain [Unknown]
  - Dyspnoea [Unknown]
  - Musculoskeletal pain [Unknown]
